FAERS Safety Report 14346078 (Version 1)
Quarter: 2017Q4

REPORT INFORMATION
  Report Type: Spontaneous
  Country: US (occurrence: US)
  Receive Date: 20171230
  Receipt Date: 20171230
  Transmission Date: 20180321
  Serious: No
  Sender: FDA-Public Use
  Company Number: None

PATIENT
  Sex: Male

DRUGS (1)
  1. HUMIRA [Suspect]
     Active Substance: ADALIMUMAB
     Indication: PRODUCT USED FOR UNKNOWN INDICATION
     Route: 058
     Dates: start: 20171115

REACTIONS (7)
  - Rash [None]
  - Musculoskeletal pain [None]
  - Neck pain [None]
  - Skin burning sensation [None]
  - Dizziness [None]
  - Injection site paraesthesia [None]
  - Rash pruritic [None]
